FAERS Safety Report 12711016 (Version 1)
Quarter: 2016Q3

REPORT INFORMATION
  Report Type: Spontaneous
  Country: US (occurrence: US)
  Receive Date: 20160902
  Receipt Date: 20160902
  Transmission Date: 20161109
  Serious: No
  Sender: FDA-Public Use
  Company Number: US-JNJFOC-20160723244

PATIENT
  Age: 86 Year
  Sex: Male
  Weight: 79.38 kg

DRUGS (2)
  1. INVOKANA [Suspect]
     Active Substance: CANAGLIFLOZIN
     Indication: TYPE 2 DIABETES MELLITUS
     Route: 048
     Dates: start: 201606, end: 201607
  2. LIMBREL [Concomitant]
     Active Substance: FLAVOCOXID
     Indication: PAIN
     Dosage: EVERY 12 HOURS
     Route: 048

REACTIONS (2)
  - Diarrhoea [Recovered/Resolved]
  - Fear [Not Recovered/Not Resolved]

NARRATIVE: CASE EVENT DATE: 201607
